FAERS Safety Report 6220864-9 (Version None)
Quarter: 2009Q2

REPORT INFORMATION
  Report Type: 
  Country: None (occurrence: None)
  Receive Date: 20090610
  Receipt Date: 20090526
  Transmission Date: 20091009
  Serious: Yes (Other)
  Sender: FDA-Public Use
  Company Number: PHHY2009FR21726

PATIENT
  Age: 77 Year
  Sex: Female

DRUGS (2)
  1. FEMARA [Suspect]
     Dosage: UNK
  2. LYRICA [Concomitant]

REACTIONS (4)
  - CONVULSION [None]
  - FEELING ABNORMAL [None]
  - VERTIGO [None]
  - VOMITING [None]
